FAERS Safety Report 14381118 (Version 3)
Quarter: 2018Q1

REPORT INFORMATION
  Report Type: Report from Study
  Country: None (occurrence: RU)
  Receive Date: 20180112
  Receipt Date: 20180130
  Transmission Date: 20180509
  Serious: Yes (Death, Hospitalization, Other)
  Sender: FDA-Public Use
  Company Number: RU-ABBVIE-18P-251-2216703-00

PATIENT
  Age: 43 Year
  Sex: Male
  Weight: 99 kg

DRUGS (4)
  1. GLECAPREVIR/PIBRENTASVIR [Suspect]
     Active Substance: GLECAPREVIR\PIBRENTASVIR
     Indication: CHRONIC HEPATITIS C
     Dosage: 300/120 MG
     Route: 048
     Dates: start: 20171125, end: 20171214
  2. ABACAVIR. [Concomitant]
     Active Substance: ABACAVIR
     Indication: HIV INFECTION
     Route: 048
     Dates: start: 20110614, end: 20171214
  3. RALTEGRAVIR. [Concomitant]
     Active Substance: RALTEGRAVIR
     Indication: HIV INFECTION
     Route: 048
     Dates: start: 20170815, end: 20171214
  4. LAMIVUDINE. [Concomitant]
     Active Substance: LAMIVUDINE
     Indication: HIV INFECTION
     Route: 048
     Dates: start: 20110614, end: 20171214

REACTIONS (9)
  - Dizziness [Unknown]
  - Circulatory collapse [Fatal]
  - Asthenia [Unknown]
  - Haematemesis [Unknown]
  - Gastric haemorrhage [Recovered/Resolved]
  - Oesophageal varices haemorrhage [Fatal]
  - Muscular weakness [Unknown]
  - Haemorrhagic anaemia [Fatal]
  - Mallory-Weiss syndrome [Fatal]

NARRATIVE: CASE EVENT DATE: 20171214
